FAERS Safety Report 9254583 (Version 2)
Quarter: 2013Q2

REPORT INFORMATION
  Report Type: Spontaneous
  Country: US (occurrence: US)
  Receive Date: 20130425
  Receipt Date: 20130617
  Transmission Date: 20140414
  Serious: No
  Sender: FDA-Public Use
  Company Number: US-PFIZER INC-2013127188

PATIENT
  Age: 60 Year
  Sex: Female
  Weight: 90.7 kg

DRUGS (2)
  1. ADVIL MIGRAINE [Suspect]
     Indication: MIGRAINE
     Dosage: 200 MG TWO CAPSULES, DAILY
     Route: 048
     Dates: start: 2013
  2. ADVIL MIGRAINE [Suspect]
     Dosage: UNK

REACTIONS (1)
  - Drug effect decreased [Unknown]
